FAERS Safety Report 12689942 (Version 2)
Quarter: 2016Q3

REPORT INFORMATION
  Report Type: Spontaneous
  Country: BR (occurrence: BR)
  Receive Date: 20160826
  Receipt Date: 20160905
  Transmission Date: 20161109
  Serious: Yes (Hospitalization, Other)
  Sender: FDA-Public Use
  Company Number: BR-ROCHE-1820512

PATIENT
  Age: 84 Year
  Sex: Female

DRUGS (2)
  1. RIVOTRIL [Suspect]
     Active Substance: CLONAZEPAM
     Indication: NERVOUSNESS
     Dosage: 3 DROPS (AS REPORTED)
     Route: 065
  2. RIVOTRIL [Suspect]
     Active Substance: CLONAZEPAM
     Indication: SLEEP DISORDER
     Route: 065

REACTIONS (5)
  - Bone disorder [Recovered/Resolved]
  - Pain [Unknown]
  - Off label use [Unknown]
  - Ill-defined disorder [Recovered/Resolved]
  - Intentional product use issue [Unknown]
